FAERS Safety Report 7708949-9 (Version None)
Quarter: 2011Q3

REPORT INFORMATION
  Report Type: 
  Country: None (occurrence: None)
  Receive Date: 20110825
  Receipt Date: 20110818
  Transmission Date: 20111222
  Serious: Yes (Hospitalization)
  Sender: FDA-Public Use
  Company Number: FR-SANOFI-AVENTIS-2011SA052784

PATIENT
  Age: 71 Year
  Sex: Female

DRUGS (7)
  1. REPAGLINIDE [Suspect]
     Route: 048
  2. SITAGLIPTIN PHOSPHATE [Suspect]
     Route: 048
  3. LEVOTHYROXINE SODIUM [Suspect]
     Route: 048
  4. COLCHICINE [Suspect]
     Route: 048
     Dates: start: 20110301
  5. BISOPROLOL FUMARATE [Concomitant]
     Route: 065
  6. PLAVIX [Suspect]
     Route: 048
  7. METFORMIN HCL [Suspect]
     Route: 065

REACTIONS (2)
  - VASCULAR PURPURA [None]
  - HYPERURICAEMIA [None]
